FAERS Safety Report 9995498 (Version 1)
Quarter: 2014Q1

REPORT INFORMATION
  Report Type: Spontaneous
  Country: US (occurrence: None)
  Receive Date: 20140225
  Receipt Date: 20140225
  Transmission Date: 20141002
  Serious: Yes (Other)
  Sender: FDA-Public Use
  Company Number: 2013-033

PATIENT
  Age: 51 Year
  Sex: Male

DRUGS (11)
  1. PRIALT [Suspect]
     Indication: BACK PAIN
     Route: 037
  2. PRIALT [Suspect]
     Indication: PAIN
     Route: 037
  3. PRIALT [Suspect]
     Indication: POST LAMINECTOMY SYNDROME
     Route: 037
  4. MORPHINE SULFATE [Suspect]
     Indication: BACK PAIN
     Dosage: UNK, MG QH
     Route: 037
  5. MORPHINE SULFATE [Suspect]
     Indication: PAIN
     Dosage: UNK, MG QH
     Route: 037
  6. DILAUDID [Suspect]
     Indication: BACK PAIN
     Dosage: UNK MG, QH, INTRATHECAL
     Route: 037
  7. DILAUDID [Suspect]
     Indication: PAIN
     Dosage: UNK MG, QH, INTRATHECAL
     Route: 037
  8. FLEXERIL(CYCLOBENZAPRINE HYDROCHLORIDE) [Concomitant]
  9. MORPHINE SULFATE(MORPHINE SULFATE) [Concomitant]
  10. BACLOFEN(BACLOFEN) [Concomitant]
  11. KLONOPIN(CLONAZEPAM) [Concomitant]

REACTIONS (27)
  - Hallucination, auditory [None]
  - Urinary incontinence [None]
  - Faecal incontinence [None]
  - Sleep disorder [None]
  - Dysstasia [None]
  - Discomfort [None]
  - Crying [None]
  - Hyperventilation [None]
  - Muscular weakness [None]
  - Peroneal nerve palsy [None]
  - Muscle tightness [None]
  - Swelling [None]
  - Back disorder [None]
  - Contusion [None]
  - Feeling abnormal [None]
  - Pain [None]
  - Muscle spasms [None]
  - Fall [None]
  - Gait disturbance [None]
  - Paraesthesia [None]
  - Burning sensation [None]
  - Loss of consciousness [None]
  - Tremor [None]
  - Anxiety [None]
  - Mental disorder [None]
  - Balance disorder [None]
  - Device issue [None]
